FAERS Safety Report 8327528-6 (Version None)
Quarter: 2012Q2

REPORT INFORMATION
  Report Type: 
  Country: None (occurrence: None)
  Receive Date: 20120502
  Receipt Date: 20120424
  Transmission Date: 20120825
  Serious: Yes (Other)
  Sender: FDA-Public Use
  Company Number: US-BAYER-201039958NA

PATIENT
  Age: 22 Year
  Sex: Female
  Weight: 81.633 kg

DRUGS (6)
  1. YASMIN [Suspect]
     Dosage: UNK
     Dates: start: 20080619, end: 20080812
  2. WARFARIN SODIUM [Concomitant]
     Dosage: 5 MG, UNK
  3. DROSPIRENONE AND ETHINYL ESTRADIOL [Suspect]
     Indication: CONTRACEPTION
     Dosage: UNK
     Route: 048
     Dates: start: 20080813, end: 20090105
  4. PRAVASTATIN [Concomitant]
     Dosage: 20 MG, UNK
  5. DROSPIRENONE AND ETHINYL ESTRADIOL [Suspect]
     Dosage: UNK
     Dates: start: 20080813, end: 20090105
  6. YASMIN [Suspect]
     Indication: CONTRACEPTION
     Dosage: UNK
     Route: 048
     Dates: start: 20080619, end: 20080812

REACTIONS (1)
  - PULMONARY EMBOLISM [None]
